FAERS Safety Report 6140082-2 (Version None)
Quarter: 2009Q2

REPORT INFORMATION
  Report Type: 
  Country: None (occurrence: None)
  Receive Date: 20090401
  Receipt Date: 20090319
  Transmission Date: 20091009
  Serious: Yes (Other)
  Sender: FDA-Public Use
  Company Number: KR-ELI_LILLY_AND_COMPANY-KR200903007298

PATIENT
  Age: 59 Year
  Sex: Male

DRUGS (11)
  1. ZYPREXA [Suspect]
     Indication: AGGRESSION
     Dosage: UNK. UNK
     Route: 048
  2. ZYPREXA [Suspect]
     Dosage: UNK, UNKNOWN
     Route: 048
  3. ZYPREXA [Suspect]
     Dosage: 20 MG, DAILY (1/D)
     Route: 048
  4. ZYPREXA [Suspect]
     Dosage: 10 MG, ONCE
  5. ZYPREXA [Suspect]
     Dosage: 10 MG, ONCE
  6. VALPROATE SODIUM [Concomitant]
     Dosage: 1000 MG, DAILY (1/D)
     Route: 065
  7. AMISULPRIDE [Concomitant]
     Dosage: 80 MG, DAILY (1/D)
     Route: 065
  8. BENZTROPINE MESYLATE [Concomitant]
     Dosage: 2 MG
     Route: 065
  9. CLONAZEPAM [Concomitant]
     Dosage: 1 MG, DAILY (1/D)
     Route: 065
  10. HALOPERIDOL [Concomitant]
     Indication: AGGRESSION
     Dosage: 5 MG, EACH EVENING
     Route: 030
  11. LORAZEPAM [Concomitant]
     Indication: INSOMNIA
     Dosage: 2 MG, DAILY (1/D)
     Route: 065

REACTIONS (2)
  - AGITATION [None]
  - RESTLESS LEGS SYNDROME [None]
